FAERS Safety Report 4457019-4 (Version None)
Quarter: 2004Q3

REPORT INFORMATION
  Report Type: 
  Country: None (occurrence: None)
  Receive Date: 20040923
  Receipt Date: 20040914
  Transmission Date: 20050211
  Serious: Yes (Other)
  Sender: FDA-Public Use
  Company Number: GB-GLAXOSMITHKLINE-B0345489A

PATIENT
  Sex: Female

DRUGS (1)
  1. SEROXAT [Suspect]
     Indication: ANXIETY

REACTIONS (21)
  - ANXIETY [None]
  - DISSOCIATION [None]
  - DRUG WITHDRAWAL SYNDROME [None]
  - DYSPNOEA [None]
  - EXTRASYSTOLES [None]
  - FEELING OF DESPAIR [None]
  - FORMICATION [None]
  - HEART RATE IRREGULAR [None]
  - HUNGER [None]
  - HYPERACUSIS [None]
  - MENTAL DISORDER [None]
  - MIDDLE INSOMNIA [None]
  - MYALGIA [None]
  - PALPITATIONS [None]
  - PANIC ATTACK [None]
  - PARAESTHESIA [None]
  - SELF MUTILATION [None]
  - SELF-INJURIOUS IDEATION [None]
  - SUICIDAL IDEATION [None]
  - THINKING ABNORMAL [None]
  - WEIGHT INCREASED [None]
